FAERS Safety Report 21348470 (Version 2)
Quarter: 2023Q1

REPORT INFORMATION
  Report Type: Spontaneous
  Country: US (occurrence: US)
  Receive Date: 20220919
  Receipt Date: 20230306
  Transmission Date: 20230417
  Serious: No
  Sender: FDA-Public Use
  Company Number: US-SA-SAC20220913000920

PATIENT
  Sex: Female

DRUGS (17)
  1. DUPIXENT [Suspect]
     Active Substance: DUPILUMAB
     Indication: Dermatitis atopic
     Dosage: 300 MG QOW
     Route: 058
  2. ATORVASTATIN [Concomitant]
     Active Substance: ATORVASTATIN
  3. FLUCONAZOLE [Concomitant]
     Active Substance: FLUCONAZOLE
  4. FLUOCINONIDE [Concomitant]
     Active Substance: FLUOCINONIDE
  5. FUROSEMIDE [Concomitant]
     Active Substance: FUROSEMIDE
  6. LEVEMIR [Concomitant]
     Active Substance: INSULIN DETEMIR
  7. MUPIROCIN [Concomitant]
     Active Substance: MUPIROCIN
  8. NOVOLOG [Concomitant]
     Active Substance: INSULIN ASPART
  9. FLUOCINOLONE ACETONIDE [Concomitant]
     Active Substance: FLUOCINOLONE ACETONIDE
  10. LABETALOL [Concomitant]
     Active Substance: LABETALOL\LABETALOL HYDROCHLORIDE
  11. PREDNISOLONE [Concomitant]
     Active Substance: PREDNISOLONE
  12. ISOSORBIDE MONONITRATE [Concomitant]
     Active Substance: ISOSORBIDE MONONITRATE
  13. ADVAIR HFA [Concomitant]
     Active Substance: FLUTICASONE PROPIONATE\SALMETEROL XINAFOATE
     Dosage: UNK, ADVAIR DISKU AER 500/50
  14. TRIAMCINOLONE [Concomitant]
     Active Substance: TRIAMCINOLONE
  15. DESOXIMETASONE [Concomitant]
     Active Substance: DESOXIMETASONE
  16. HYDROXYZINE HYDROCHLORIDE [Concomitant]
     Active Substance: HYDROXYZINE HYDROCHLORIDE
  17. TRIBENZOR [Concomitant]
     Active Substance: AMLODIPINE BESYLATE\HYDROCHLOROTHIAZIDE\OLMESARTAN MEDOXOMIL
     Dosage: TRIBENZOR40- TAB 10-25MG

REACTIONS (4)
  - Sinusitis [Not Recovered/Not Resolved]
  - Surgery [Unknown]
  - Rash [Not Recovered/Not Resolved]
  - Product dose omission in error [Unknown]
